FAERS Safety Report 13641035 (Version 2)
Quarter: 2017Q3

REPORT INFORMATION
  Report Type: Spontaneous
  Country: US (occurrence: US)
  Receive Date: 20170612
  Receipt Date: 20170928
  Transmission Date: 20171127
  Serious: No
  Sender: FDA-Public Use
  Company Number: US-ALEXION PHARMACEUTICALS INC.-A201706143

PATIENT
  Sex: Male
  Weight: 16 kg

DRUGS (1)
  1. STRENSIQ [Suspect]
     Active Substance: ASFOTASE ALFA
     Indication: HYPOPHOSPHATASIA
     Dosage: 1 MG/KG, SIX TIMES/WEEK
     Route: 058
     Dates: start: 20160831

REACTIONS (9)
  - Blood alkaline phosphatase abnormal [Unknown]
  - Haemoglobin abnormal [Unknown]
  - Crystal urine [Unknown]
  - Lymphocyte count abnormal [Unknown]
  - Tooth loss [Unknown]
  - Blood phosphorus abnormal [Unknown]
  - Blood urea abnormal [Unknown]
  - Haematocrit abnormal [Unknown]
  - Urinary casts [Unknown]

NARRATIVE: CASE EVENT DATE: 20170314
